FAERS Safety Report 10207950 (Version 1)
Quarter: 2014Q2

REPORT INFORMATION
  Report Type: Spontaneous
  Country: US (occurrence: US)
  Receive Date: 20140530
  Receipt Date: 20140530
  Transmission Date: 20141212
  Serious: No
  Sender: FDA-Public Use
  Company Number: US-GLAXOSMITHKLINE-A1065858A

PATIENT
  Sex: Female

DRUGS (6)
  1. VENTOLIN [Suspect]
     Indication: ASTHMA
     Route: 055
     Dates: start: 2008, end: 20140316
  2. METFORMIN [Concomitant]
  3. LOPRESSOR [Concomitant]
  4. PRILOSEC [Concomitant]
  5. LOSARTAN [Concomitant]
  6. NORVASC [Concomitant]

REACTIONS (2)
  - Respiratory tract irritation [Not Recovered/Not Resolved]
  - Bronchitis [Unknown]
